FAERS Safety Report 7262442-9 (Version None)
Quarter: 2011Q1

REPORT INFORMATION
  Report Type: 
  Country: None (occurrence: None)
  Receive Date: 20110130
  Receipt Date: 20101116
  Transmission Date: 20110831
  Serious: No
  Sender: FDA-Public Use
  Company Number: US-ABBOTT-10P-163-0686329-00

PATIENT
  Sex: Male
  Weight: 94.886 kg

DRUGS (6)
  1. HUMIRA [Suspect]
     Indication: RHEUMATOID ARTHRITIS
     Dates: start: 20050101
  2. SYNTHROID [Concomitant]
     Indication: HYPOTHYROIDISM
  3. ARTHROTEC [Concomitant]
     Indication: RHEUMATOID ARTHRITIS
  4. METHOTREXATE [Concomitant]
     Indication: PRODUCT USED FOR UNKNOWN INDICATION
  5. NORVASC [Concomitant]
     Indication: HYPERTENSION
  6. CELEXA [Concomitant]
     Indication: IRRITABILITY

REACTIONS (1)
  - DIARRHOEA [None]
